FAERS Safety Report 22540976 (Version 4)
Quarter: 2024Q1

REPORT INFORMATION
  Report Type: Spontaneous
  Country: US (occurrence: US)
  Receive Date: 20230609
  Receipt Date: 20240307
  Transmission Date: 20240410
  Serious: Yes (Other)
  Sender: FDA-Public Use
  Company Number: US-PFIZER INC-PV202300100028

PATIENT
  Age: 74 Year
  Sex: Female
  Weight: 88.435 kg

DRUGS (4)
  1. IBRANCE [Suspect]
     Active Substance: PALBOCICLIB
     Indication: Breast cancer female
     Dosage: ON DAYS 1-21. TAKE WHOLE WITH WATER AND FOOD, AT APPROXIMATELY THE SAME TIME EACH DAY
     Route: 048
  2. IBRANCE [Suspect]
     Active Substance: PALBOCICLIB
     Indication: Breast cancer female
     Dosage: 75 MG
  3. IBRANCE [Suspect]
     Active Substance: PALBOCICLIB
     Dosage: 100 MG TABLET ON DAYS 1-21. TAKE WHOLE WITH WATER AND FOOD, AT APPROXIMATELY THE SAME TIME EACH DAY
     Route: 048
     Dates: start: 20191003
  4. LETROZOLE [Suspect]
     Active Substance: LETROZOLE
     Indication: Breast cancer metastatic
     Dosage: UNK
     Dates: start: 20191003

REACTIONS (4)
  - Mental impairment [Unknown]
  - Product dispensing error [Unknown]
  - Fatigue [Unknown]
  - Illness [Unknown]
